FAERS Safety Report 6252109-8 (Version None)
Quarter: 2009Q2

REPORT INFORMATION
  Report Type: 
  Country: None (occurrence: None)
  Receive Date: 20090630
  Receipt Date: 20060514
  Transmission Date: 20091009
  Serious: Yes (Hospitalization)
  Sender: FDA-Public Use
  Company Number: US-ROCHE-639046

PATIENT
  Sex: Male

DRUGS (17)
  1. ENFUVIRTIDE [Suspect]
     Route: 065
     Dates: start: 20040427, end: 20060621
  2. VIDEX [Concomitant]
     Dates: start: 20030624, end: 20060605
  3. VIREAD [Concomitant]
     Dates: start: 20030624, end: 20060621
  4. APTIVUS [Concomitant]
     Dates: start: 20040408, end: 20060605
  5. NORVIR [Concomitant]
     Dates: start: 20040408, end: 20060605
  6. NORVIR [Concomitant]
     Dates: start: 20060605, end: 20080814
  7. EPZICOM [Concomitant]
     Dates: start: 20060605, end: 20060621
  8. PREZISTA [Concomitant]
     Dates: start: 20060605, end: 20080814
  9. TRUVADA [Concomitant]
     Dates: start: 20060711, end: 20080814
  10. ZIAGEN [Concomitant]
     Dates: end: 20060605
  11. BACTRIM DS [Concomitant]
     Dosage: FREQUENCY REPORTED AS
     Dates: start: 20060711, end: 20070723
  12. BACTRIM DS [Concomitant]
     Dosage: DOSE REPORTED AS TIW AND DOSE 800/160
     Dates: end: 20060621
  13. FLUCONAZOLE [Concomitant]
     Dates: start: 20060711, end: 20070723
  14. FLUCONAZOLE [Concomitant]
     Dates: end: 20060621
  15. ZITHROMAX [Concomitant]
     Dosage: FREQUENCY REPORTED AS QWK.
     Dates: start: 20060711, end: 20070723
  16. ZITHROMAX [Concomitant]
     Dates: end: 20060621
  17. VANCOMYCIN [Concomitant]
     Route: 042
     Dates: start: 20070701, end: 20070801

REACTIONS (6)
  - ASTHENIA [None]
  - BACTERAEMIA [None]
  - MEMORY IMPAIRMENT [None]
  - MENINGITIS BACTERIAL [None]
  - SEPTIC EMBOLUS [None]
  - SUBCUTANEOUS ABSCESS [None]
